FAERS Safety Report 9540355 (Version 4)
Quarter: 2013Q4

REPORT INFORMATION
  Report Type: Report from Study
  Country: PH (occurrence: PH)
  Receive Date: 20130920
  Receipt Date: 20131011
  Transmission Date: 20140711
  Serious: Yes (Disabling)
  Sender: FDA-Public Use
  Company Number: PH-009507513-1309PHL006387

PATIENT
  Age: 43 Year
  Sex: Male
  Weight: 76 kg

DRUGS (6)
  1. RIBAVIRIN [Suspect]
     Indication: CHRONIC HEPATITIS C
     Dosage: 3 CAPSULES, AM
     Route: 048
     Dates: start: 20130729, end: 20130729
  2. RIBAVIRIN [Suspect]
     Dosage: 3 CAPSULES, ONCE
     Route: 048
     Dates: start: 20130807, end: 20130807
  3. PEGINTERFERON ALFA-2A [Suspect]
     Indication: CHRONIC HEPATITIS C
     Dosage: 180 MICROGRAM, ONCE
     Route: 058
     Dates: start: 20130806, end: 20130806
  4. ALVEDON [Concomitant]
     Indication: PYREXIA
     Dosage: TOTAL DAILY DOSE: 500 MG, QOD
     Route: 048
     Dates: start: 20130702, end: 20130817
  5. ALVEDON [Concomitant]
     Indication: HEADACHE
  6. MEFENAMIC ACID [Concomitant]
     Indication: HEADACHE
     Dosage: TOTAL DAILY DOSE: 1500 MILIGRAM, PRN
     Route: 048
     Dates: start: 20130729

REACTIONS (1)
  - Dyspnoea [Recovered/Resolved]
